FAERS Safety Report 7379651-0 (Version None)
Quarter: 2011Q1

REPORT INFORMATION
  Report Type: 
  Country: None (occurrence: None)
  Receive Date: 20110329
  Receipt Date: 20110324
  Transmission Date: 20110831
  Serious: Yes (Other)
  Sender: FDA-Public Use
  Company Number: US-PFIZER INC-2011028632

PATIENT
  Sex: Female
  Weight: 58.05 kg

DRUGS (3)
  1. KLONOPIN [Concomitant]
     Indication: SLEEP DISORDER
  2. NEURONTIN [Suspect]
     Indication: NEURALGIA
     Dosage: 900 MG, 2X/DAY
     Route: 048
     Dates: start: 20100801
  3. KLONOPIN [Concomitant]
     Indication: BRUXISM
     Dosage: 1 MG, UNK

REACTIONS (4)
  - INFECTION [None]
  - MALAISE [None]
  - SINUSITIS [None]
  - BRONCHITIS [None]
